FAERS Safety Report 12123871 (Version 2)
Quarter: 2016Q1

REPORT INFORMATION
  Report Type: Spontaneous
  Country: US (occurrence: US)
  Receive Date: 20160228
  Receipt Date: 20160318
  Transmission Date: 20160526
  Serious: Yes (Hospitalization, Other)
  Sender: FDA-Public Use
  Company Number: GXBR2016US000721

PATIENT
  Age: 29 Year
  Sex: Male

DRUGS (12)
  1. BUSULFAN [Suspect]
     Active Substance: BUSULFAN
     Indication: PROPHYLAXIS AGAINST GRAFT VERSUS HOST DISEASE
     Dosage: UNK DF, UNK
     Route: 065
     Dates: start: 20150212
  2. BUDESONIDE. [Concomitant]
     Active Substance: BUDESONIDE
     Indication: PRODUCT USED FOR UNKNOWN INDICATION
     Dosage: UNK DF, UNK
     Route: 048
     Dates: start: 20151210
  3. LISINOPRIL. [Concomitant]
     Active Substance: LISINOPRIL
     Indication: HYPERTENSION
  4. METOPROLOL. [Concomitant]
     Active Substance: METOPROLOL
     Indication: TACHYCARDIA
  5. TACROLIMUS. [Suspect]
     Active Substance: TACROLIMUS
     Indication: PROPHYLAXIS AGAINST GRAFT VERSUS HOST DISEASE
     Dosage: UNK DF, UNK
     Route: 065
     Dates: start: 20150212
  6. CYTOXAN [Suspect]
     Active Substance: CYCLOPHOSPHAMIDE
     Indication: PROPHYLAXIS AGAINST GRAFT VERSUS HOST DISEASE
     Dosage: UNK DF, UNK
     Route: 065
     Dates: start: 20150212
  7. AMBIEN [Concomitant]
     Active Substance: ZOLPIDEM TARTRATE
     Indication: PRODUCT USED FOR UNKNOWN INDICATION
     Dosage: UNK DF, UNK
     Route: 065
  8. MAGNESIUM [Concomitant]
     Active Substance: MAGNESIUM
     Indication: HYPOMAGNESAEMIA
     Dosage: 4 G, EVERY TUESDAY AND FRIDAY
     Route: 042
  9. LISINOPRIL. [Concomitant]
     Active Substance: LISINOPRIL
     Indication: TACHYCARDIA
     Dosage: UNK DF, UNK
     Route: 065
  10. METOPROLOL. [Concomitant]
     Active Substance: METOPROLOL
     Indication: HYPERTENSION
     Dosage: UNK DF, UNK
     Route: 065
  11. TACROLIMUS. [Suspect]
     Active Substance: TACROLIMUS
     Dosage: 5 MG, Q12H
     Route: 065
     Dates: start: 20151217
  12. METHOTREXATE [Suspect]
     Active Substance: METHOTREXATE
     Indication: PROPHYLAXIS AGAINST GRAFT VERSUS HOST DISEASE
     Dosage: UNK DF, UNK
     Route: 065
     Dates: start: 20150212

REACTIONS (46)
  - Pyrexia [Unknown]
  - Device related infection [Unknown]
  - Cellulitis [Unknown]
  - Wheezing [Not Recovered/Not Resolved]
  - Transaminases increased [Unknown]
  - Febrile neutropenia [Unknown]
  - Klebsiella sepsis [Unknown]
  - Bone marrow failure [Unknown]
  - Depression [Unknown]
  - Graft versus host disease [Unknown]
  - Electrolyte imbalance [Unknown]
  - Vomiting [Unknown]
  - Diarrhoea [Unknown]
  - Condition aggravated [Unknown]
  - Pancytopenia [Unknown]
  - Acute graft versus host disease in skin [Unknown]
  - Dyspnoea [Unknown]
  - Migraine [Unknown]
  - Headache [Unknown]
  - Hypersensitivity [Unknown]
  - Hypogammaglobulinaemia [Unknown]
  - Epstein-Barr viraemia [Unknown]
  - Asthenia [Not Recovered/Not Resolved]
  - Rash [Recovering/Resolving]
  - Nausea [Unknown]
  - Graft versus host disease in gastrointestinal tract [Unknown]
  - Osteopenia [Unknown]
  - Muscle spasms [Unknown]
  - Sciatica [Unknown]
  - Rhinorrhoea [Not Recovered/Not Resolved]
  - Dizziness [Recovering/Resolving]
  - Fluid overload [Unknown]
  - Anxiety [Unknown]
  - Spinal compression fracture [Unknown]
  - Musculoskeletal chest pain [Unknown]
  - Pruritus generalised [Recovering/Resolving]
  - Fall [Unknown]
  - Chest pain [Unknown]
  - Pain [Unknown]
  - Catheter site related reaction [Unknown]
  - Cushingoid [Unknown]
  - Pain in extremity [Unknown]
  - Cytomegalovirus viraemia [Unknown]
  - Mucosal inflammation [Unknown]
  - Cough [Recovered/Resolved]
  - Road traffic accident [Unknown]

NARRATIVE: CASE EVENT DATE: 20150306
